FAERS Safety Report 14482358 (Version 6)
Quarter: 2018Q2

REPORT INFORMATION
  Report Type: Spontaneous
  Country: CN (occurrence: CN)
  Receive Date: 20180202
  Receipt Date: 20180426
  Transmission Date: 20180711
  Serious: Yes (Life-Threatening, Hospitalization, Other)
  Sender: FDA-Public Use
  Company Number: CN-TAKEDA-2018MPI001119

PATIENT
  Age: 68 Year
  Sex: Female
  Weight: 51.5 kg

DRUGS (7)
  1. BORTEZOMIB [Suspect]
     Active Substance: BORTEZOMIB
     Indication: PLASMA CELL MYELOMA
     Dosage: 2 MG, QD
     Route: 058
     Dates: start: 20171226, end: 20180119
  2. MELPHALAN. [Suspect]
     Active Substance: MELPHALAN
     Indication: PLASMA CELL MYELOMA
     Dosage: 14 MG, QD
     Route: 048
     Dates: start: 20171226, end: 20171229
  3. PREDNISONE. [Suspect]
     Active Substance: PREDNISONE
     Dosage: 90 MG, UNK
     Route: 048
     Dates: end: 20180119
  4. NIFEDIPINE. [Concomitant]
     Active Substance: NIFEDIPINE
     Indication: HYPERTENSION
     Dosage: 30 MG, QD
     Route: 065
  5. PREDNISONE. [Suspect]
     Active Substance: PREDNISONE
     Indication: PLASMA CELL MYELOMA
     Dosage: 90 MG, QD
     Route: 048
     Dates: start: 20171226, end: 20171229
  6. MELPHALAN. [Suspect]
     Active Substance: MELPHALAN
     Dosage: UNK
     Route: 048
     Dates: end: 20180119
  7. FOSINOPRIL [Concomitant]
     Active Substance: FOSINOPRIL
     Indication: HYPERTENSION
     Dosage: 10 MG, QD
     Route: 065

REACTIONS (3)
  - Platelet count decreased [Recovered/Resolved]
  - Appendicitis [Recovered/Resolved]
  - Acute kidney injury [Recovered/Resolved]

NARRATIVE: CASE EVENT DATE: 20180122
